FAERS Safety Report 20803444 (Version 1)
Quarter: 2022Q2

REPORT INFORMATION
  Report Type: Spontaneous
  Country: US (occurrence: US)
  Receive Date: 20220509
  Receipt Date: 20220509
  Transmission Date: 20220721
  Serious: No
  Sender: FDA-Public Use
  Company Number: US-BAYER-2022A064575

PATIENT
  Age: 83 Year
  Sex: Male

DRUGS (5)
  1. MIRALAX [Suspect]
     Active Substance: POLYETHYLENE GLYCOL 3350
     Indication: Constipation
     Dosage: 1 DF, QD, IN A GLASS OF WATER
     Route: 048
     Dates: start: 20220501, end: 20220501
  2. MIRALAX [Suspect]
     Active Substance: POLYETHYLENE GLYCOL 3350
     Indication: Constipation
     Dosage: 1 DF, BID, IN A GLASS OF WATER
     Route: 048
     Dates: start: 20220502, end: 20220502
  3. ALEVE [Concomitant]
     Active Substance: NAPROXEN SODIUM
  4. CEPHALEXIN [Concomitant]
     Active Substance: CEPHALEXIN
  5. ACYCLOVIR [Concomitant]
     Active Substance: ACYCLOVIR

REACTIONS (2)
  - Drug ineffective [Not Recovered/Not Resolved]
  - Extra dose administered [Not Recovered/Not Resolved]

NARRATIVE: CASE EVENT DATE: 20220501
